FAERS Safety Report 17082288 (Version 1)
Quarter: 2019Q4

REPORT INFORMATION
  Report Type: Spontaneous
  Country: JP (occurrence: JP)
  Receive Date: 20191127
  Receipt Date: 20191127
  Transmission Date: 20200122
  Serious: Yes (Other)
  Sender: FDA-Public Use
  Company Number: JP-TEVA-668160ISR

PATIENT
  Age: 34 Year
  Sex: Female

DRUGS (2)
  1. MESALAZINE [Suspect]
     Active Substance: MESALAMINE
     Indication: BEHCET^S SYNDROME
     Dosage: 1500 MILLIGRAM DAILY;
     Dates: start: 2010
  2. PREDNISOLONE. [Suspect]
     Active Substance: PREDNISOLONE
     Indication: BEHCET^S SYNDROME
     Dosage: 13 MILLIGRAM DAILY;
     Route: 048

REACTIONS (3)
  - Osteoporotic fracture [Unknown]
  - Maternal exposure during pregnancy [Unknown]
  - Osteoporosis [Unknown]
